FAERS Safety Report 7364505-6 (Version None)
Quarter: 2011Q1

REPORT INFORMATION
  Report Type: 
  Country: None (occurrence: None)
  Receive Date: 20110321
  Receipt Date: 20110308
  Transmission Date: 20110831
  Serious: Yes (Hospitalization, Disabling)
  Sender: FDA-Public Use
  Company Number: US-MERCK-1011USA02599

PATIENT
  Age: 66 Year
  Sex: Female
  Weight: 60 kg

DRUGS (1)
  1. FOSAMAX [Suspect]
     Indication: OSTEOPOROSIS
     Route: 048
     Dates: start: 20020901, end: 20081101

REACTIONS (23)
  - TACHYCARDIA [None]
  - KNEE DEFORMITY [None]
  - BLOOD CHOLESTEROL INCREASED [None]
  - OSTEOPOROSIS [None]
  - URETHRAL DISORDER [None]
  - COLONIC POLYP [None]
  - BREAST CANCER [None]
  - LUNG INFILTRATION [None]
  - FEMUR FRACTURE [None]
  - LOW TURNOVER OSTEOPATHY [None]
  - DYSPNOEA [None]
  - ABDOMINAL PAIN UPPER [None]
  - HAEMORRHOIDS [None]
  - TOOTH EXTRACTION [None]
  - HYDRONEPHROSIS [None]
  - DENTAL CARIES [None]
  - ANAEMIA [None]
  - URETERIC OBSTRUCTION [None]
  - OSTEOARTHRITIS [None]
  - STRESS FRACTURE [None]
  - LYMPHADENOPATHY [None]
  - GASTROOESOPHAGEAL REFLUX DISEASE [None]
  - URINARY TRACT INFECTION [None]
